FAERS Safety Report 4935069-9 (Version None)
Quarter: 2006Q1

REPORT INFORMATION
  Report Type: 
  Country: None (occurrence: None)
  Receive Date: 20060302
  Receipt Date: 20060216
  Transmission Date: 20060701
  Serious: Yes (Disabling)
  Sender: FDA-Public Use
  Company Number: US200602003538

PATIENT
  Age: 65 Year
  Sex: Female

DRUGS (2)
  1. FORTEO [Suspect]
     Dosage: DAILY (1/D)
     Dates: start: 20040501
  2. FORTEO PEN (FORTEO PEN) [Concomitant]

REACTIONS (3)
  - NEUROPATHY [None]
  - PERONEAL NERVE PALSY [None]
  - PHARMACEUTICAL PRODUCT COMPLAINT [None]
